FAERS Safety Report 5463157-X (Version None)
Quarter: 2007Q3

REPORT INFORMATION
  Report Type: 
  Country: None (occurrence: None)
  Receive Date: 20070920
  Receipt Date: 20070912
  Transmission Date: 20080115
  Serious: Yes (Hospitalization)
  Sender: FDA-Public Use
  Company Number: JP-ASTRAZENECA-2007AP05496

PATIENT
  Age: 32021 Day
  Sex: Female
  Weight: 45 kg

DRUGS (2)
  1. ARIMIDEX [Suspect]
     Indication: BREAST CANCER STAGE IV
     Route: 048
     Dates: start: 20060515, end: 20070815
  2. ARIMIDEX [Suspect]
     Route: 048
     Dates: start: 20070901

REACTIONS (1)
  - LIVER ABSCESS [None]
